FAERS Safety Report 6690375-5 (Version None)
Quarter: 2010Q2

REPORT INFORMATION
  Report Type: 
  Country: None (occurrence: None)
  Receive Date: 20100421
  Receipt Date: 20100414
  Transmission Date: 20101027
  Serious: Yes (Death, Other)
  Sender: FDA-Public Use
  Company Number: SY-ELI_LILLY_AND_COMPANY-SY201004005187

PATIENT
  Age: 59 Year
  Sex: Female

DRUGS (1)
  1. INSULIN HUMAN [Suspect]
     Indication: DIABETES MELLITUS
     Route: 058
     Dates: start: 20100323, end: 20100330

REACTIONS (2)
  - CARDIAC OPERATION [None]
  - DEATH [None]
